FAERS Safety Report 6216282-X (Version None)
Quarter: 2009Q2

REPORT INFORMATION
  Report Type: 
  Country: None (occurrence: None)
  Receive Date: 20090605
  Receipt Date: 20090601
  Transmission Date: 20091009
  Serious: Yes (Hospitalization)
  Sender: FDA-Public Use
  Company Number: B0577576A

PATIENT
  Sex: Female

DRUGS (1)
  1. MALANIL [Suspect]
     Indication: MALARIA PROPHYLAXIS
     Route: 048

REACTIONS (4)
  - ABDOMINAL PAIN [None]
  - GALLBLADDER ENLARGEMENT [None]
  - JAUNDICE [None]
  - LENTIGO [None]
